FAERS Safety Report 5022413-X (Version None)
Quarter: 2006Q2

REPORT INFORMATION
  Report Type: 
  Country: None (occurrence: None)
  Receive Date: 20060605
  Receipt Date: 20060522
  Transmission Date: 20061013
  Serious: Yes (Other)
  Sender: FDA-Public Use
  Company Number: 2006047993

PATIENT
  Age: 39 Year
  Sex: Male
  Weight: 98 kg

DRUGS (7)
  1. LYRICA [Suspect]
     Indication: NEURALGIA
     Dosage: 600 MG (300 MG, 2 IN 1 D), ORAL
     Route: 048
     Dates: start: 20050901
  2. NEURONTIN [Suspect]
     Indication: NEURALGIA
     Dates: start: 20020301
  3. SECTRAL [Concomitant]
  4. ATACAND [Concomitant]
  5. AMITRIPTYLINE HCL [Concomitant]
  6. TRAMADOL HCL [Concomitant]
  7. STILNOCT (ZOLPIDEM TARTRATE) [Concomitant]

REACTIONS (5)
  - ATRIAL FIBRILLATION [None]
  - DRUG INEFFECTIVE [None]
  - MICROCYTIC ANAEMIA [None]
  - PLATELET DISORDER [None]
  - WEIGHT DECREASED [None]
